FAERS Safety Report 7262511-3 (Version None)
Quarter: 2011Q1

REPORT INFORMATION
  Report Type: 
  Country: None (occurrence: None)
  Receive Date: 20110130
  Receipt Date: 20101124
  Transmission Date: 20110831
  Serious: No
  Sender: FDA-Public Use
  Company Number: US-ABBOTT-10P-163-0688324-00

PATIENT
  Weight: 128.48 kg

DRUGS (23)
  1. FUROSEMIDE [Concomitant]
     Indication: PULMONARY ARTERIAL HYPERTENSION
     Dates: start: 20101015
  2. NEURONTIN [Concomitant]
     Indication: NEUROPATHY PERIPHERAL
     Dosage: 2 TABLETS TWICE A DAY
     Dates: start: 20050825
  3. ZYRTEC [Concomitant]
     Indication: SINUS CONGESTION
     Dates: start: 20070206
  4. HUMIRA [Suspect]
     Indication: RHEUMATOID ARTHRITIS
     Dates: start: 20101105
  5. REVATIO [Concomitant]
     Indication: PULMONARY ARTERIAL HYPERTENSION
     Dates: start: 20101004
  6. FOLIC ACID [Concomitant]
     Indication: VITAMIN SUPPLEMENTATION
     Dates: start: 20100629
  7. PROVENTIL-HFA [Concomitant]
     Indication: DYSPNOEA
     Dosage: 1-2 PUFFS
     Route: 055
     Dates: start: 20071120
  8. NOVOLOG [Concomitant]
     Indication: DIABETES MELLITUS
     Dosage: THREE TIMES A DAY  40 UNITS IF BLOOD GLUCOSE IS OVER 200
     Dates: start: 20070101
  9. WELLBUTRIN SR [Concomitant]
     Indication: DEPRESSION
     Dates: start: 20100828
  10. OXYGEN [Concomitant]
     Indication: SLEEP APNOEA SYNDROME
     Dosage: CPAP MACHINE PRESSURE 15
     Dates: start: 20090318
  11. PROPOXYPENE N-ACETEMINOPHEN [Concomitant]
     Indication: PAIN
     Dosage: 100/650 MILLIGRAMS AS NEEDED
     Dates: start: 20100725
  12. SPIRONOLACTONE [Concomitant]
     Indication: PULMONARY ARTERIAL HYPERTENSION
  13. BENTYL [Concomitant]
     Indication: DIVERTICULITIS
     Dates: start: 20090209
  14. OXYGEN [Concomitant]
     Indication: OXYGEN SUPPLEMENTATION
     Dates: start: 20100825
  15. PREDNISONE [Concomitant]
     Indication: RASH
     Dates: start: 20100624
  16. POTASSIUM CHLORIDE [Concomitant]
     Indication: MINERAL SUPPLEMENTATION
     Dosage: MEQ
     Dates: start: 20101019
  17. BENAZEPRIL HYDROCHLORIDE [Concomitant]
     Indication: HYPERTENSION
     Dates: start: 20090825
  18. ADVAIR [Concomitant]
     Indication: ASTHMA
     Dosage: 250/50 MCG
     Dates: start: 20091229
  19. FLONASE [Concomitant]
     Indication: HYPERSENSITIVITY
  20. LEVEMIR [Concomitant]
     Indication: DIABETES MELLITUS
     Dates: start: 20071123
  21. PRAVASTATIN [Concomitant]
     Indication: BLOOD CHOLESTEROL INCREASED
     Dates: start: 20080814
  22. DICLOFENAC SODIUM [Concomitant]
     Indication: OSTEOARTHRITIS
     Dosage: GEL-1%
     Dates: start: 20100310
  23. ACETAMINOPHEN AND HYDROCODONE BITARTRATE [Concomitant]
     Indication: PAIN
     Dosage: 10/325 MILLIGRAMS
     Dates: start: 20101007

REACTIONS (5)
  - INJECTION SITE ERYTHEMA [None]
  - INJECTION SITE RASH [None]
  - DYSPNOEA [None]
  - INJECTION SITE PAIN [None]
  - INJECTION SITE HAEMATOMA [None]
